FAERS Safety Report 26131800 (Version 1)
Quarter: 2025Q4

REPORT INFORMATION
  Report Type: Report from Study
  Country: US (occurrence: US)
  Receive Date: 20251208
  Receipt Date: 20251208
  Transmission Date: 20260117
  Serious: Yes (Hospitalization)
  Sender: BAYER HEALTHCARE LLC
  Company Number: US-BAYER-2025A154341

PATIENT
  Age: 77 Year
  Sex: Female
  Weight: 72.562 kg

DRUGS (8)
  1. ADEMPAS [Suspect]
     Active Substance: RIOCIGUAT
     Indication: Pulmonary arterial hypertension
     Dosage: UNK
     Dates: start: 20251112
  2. ADEMPAS [Suspect]
     Active Substance: RIOCIGUAT
     Indication: Pulmonary arterial hypertension
     Dosage: 1.0 MG, TID
     Route: 048
  3. ASPIRIN [Suspect]
     Active Substance: ASPIRIN
     Dosage: UNK
  4. METRONIDAZOLE [Concomitant]
     Active Substance: METRONIDAZOLE
  5. ACETAMINOPHEN [Concomitant]
     Active Substance: ACETAMINOPHEN
  6. VITAMINS [Concomitant]
     Active Substance: VITAMINS
  7. BUMETANIDE [Concomitant]
     Active Substance: BUMETANIDE
  8. OXYGEN [Concomitant]
     Active Substance: OXYGEN

REACTIONS (5)
  - Intra-abdominal haematoma [None]
  - Dizziness postural [Not Recovered/Not Resolved]
  - Diplopia [None]
  - Oedema peripheral [None]
  - Dizziness [None]

NARRATIVE: CASE EVENT DATE: 20250101
